FAERS Safety Report 14703621 (Version 1)
Quarter: 2018Q2

REPORT INFORMATION
  Report Type: Spontaneous
  Country: US (occurrence: US)
  Receive Date: 20180402
  Receipt Date: 20180402
  Transmission Date: 20180711
  Serious: Yes (Hospitalization)
  Sender: FDA-Public Use
  Company Number: US-BIOGEN-2018BI00547634

PATIENT
  Age: 43 Year
  Sex: Female

DRUGS (1)
  1. TECFIDERA [Suspect]
     Active Substance: DIMETHYL FUMARATE
     Indication: MULTIPLE SCLEROSIS
     Route: 065

REACTIONS (4)
  - Hyperhidrosis [Recovered/Resolved]
  - Cardiovascular symptom [Recovered/Resolved]
  - Abdominal pain [Not Recovered/Not Resolved]
  - Perforated ulcer [Not Recovered/Not Resolved]

NARRATIVE: CASE EVENT DATE: 20180322
